FAERS Safety Report 9393803 (Version 1)
Quarter: 2013Q3

REPORT INFORMATION
  Report Type: Spontaneous
  Country: IT (occurrence: IT)
  Receive Date: 20130710
  Receipt Date: 20130710
  Transmission Date: 20140515
  Serious: Yes (Other)
  Sender: FDA-Public Use
  Company Number: IT-BAYER-2013-063059

PATIENT
  Age: 14 Year
  Sex: Female

DRUGS (1)
  1. ASPIRINA [Suspect]
     Dosage: 1 DF, ONCE
     Route: 048
     Dates: start: 20130420, end: 20130420

REACTIONS (2)
  - Angioedema [Recovering/Resolving]
  - Urticaria [Recovering/Resolving]
